FAERS Safety Report 11741923 (Version 1)
Quarter: 2015Q4

REPORT INFORMATION
  Report Type: Spontaneous
  Country: US (occurrence: None)
  Receive Date: 20151113
  Receipt Date: 20151113
  Transmission Date: 20160304
  Serious: Yes (Hospitalization)
  Sender: FDA-Public Use
  Company Number: None

PATIENT
  Age: 42 Year
  Sex: Male
  Weight: 131.54 kg

DRUGS (5)
  1. CPAP [Concomitant]
     Active Substance: DEVICE
  2. ANDROGEL [Suspect]
     Active Substance: TESTOSTERONE
     Indication: FATIGUE
     Dosage: 2 PUMPS?ONCE DAILY?APPLIED TO A SURFACE, USUALLY THE SKIN
     Dates: start: 20121231, end: 20130528
  3. ASPIRIN. [Concomitant]
     Active Substance: ASPIRIN
  4. WARFARIN [Concomitant]
     Active Substance: WARFARIN
  5. ATORVASTIN [Concomitant]
     Active Substance: ATORVASTATIN

REACTIONS (1)
  - Transient ischaemic attack [None]

NARRATIVE: CASE EVENT DATE: 20130528
